FAERS Safety Report 11062050 (Version 1)
Quarter: 2015Q2

REPORT INFORMATION
  Report Type: Other
  Country: CN (occurrence: CN)
  Receive Date: 20150424
  Receipt Date: 20150424
  Transmission Date: 20150821
  Serious: Yes (Life-Threatening, Hospitalization)
  Sender: FDA-Public Use
  Company Number: CN-ENDO PHARMACEUTICALS INC-2015-000494

PATIENT
  Age: 43 Year
  Sex: Male

DRUGS (4)
  1. ISONIAZID. [Suspect]
     Active Substance: ISONIAZID
     Indication: MENINGITIS TUBERCULOUS
     Route: 065
     Dates: start: 20120116
  2. ETHAMBUTOL [Suspect]
     Active Substance: ETHAMBUTOL HYDROCHLORIDE
     Indication: MENINGITIS TUBERCULOUS
     Route: 065
     Dates: start: 20120116
  3. RIFAMPICIN [Suspect]
     Active Substance: RIFAMPIN
     Indication: MENINGITIS TUBERCULOUS
     Route: 065
     Dates: start: 20120116, end: 2012
  4. PYRAZINAMIDE TABLETS 500 MG [Suspect]
     Active Substance: PYRAZINAMIDE
     Indication: MENINGITIS TUBERCULOUS
     Route: 065
     Dates: start: 20120116

REACTIONS (5)
  - Liver disorder [None]
  - Pericardial effusion [None]
  - Eosinophilic myocarditis [Recovered/Resolved]
  - Respiratory arrest [None]
  - Cardiac arrest [None]

NARRATIVE: CASE EVENT DATE: 20120317
